FAERS Safety Report 9507724 (Version 2)
Quarter: 2013Q3

REPORT INFORMATION
  Report Type: Spontaneous
  Country: ZA (occurrence: ZA)
  Receive Date: 20130909
  Receipt Date: 20130918
  Transmission Date: 20140515
  Serious: Yes (Hospitalization)
  Sender: FDA-Public Use
  Company Number: ZA-NOVOPROD-386875

PATIENT
  Age: 63 Year
  Sex: Female
  Weight: 83 kg

DRUGS (7)
  1. LEVEMIR FLEXPEN [Suspect]
     Indication: TYPE 2 DIABETES MELLITUS
     Dosage: 20 IU, SINGLE (AT NIGHT)
     Route: 058
     Dates: start: 2012
  2. NOVORAPID FLEXPEN [Concomitant]
     Indication: TYPE 2 DIABETES MELLITUS
     Dosage: 5 U, TID
     Route: 065
     Dates: start: 2012
  3. NOVORAPID FLEXPEN [Concomitant]
     Dosage: 10 IU, TID
  4. CORTISONE [Concomitant]
     Dosage: UNK
     Route: 065
  5. PERINDOPRIL/INDAPAMIDE [Concomitant]
     Indication: HYPERTENSION
     Dosage: UNK
     Route: 048
  6. ZANIDIP [Concomitant]
     Indication: HYPERTENSION
     Dosage: UNK
     Route: 048
  7. CARDIO ASPIRIN [Concomitant]
     Dosage: UNK
     Route: 048

REACTIONS (2)
  - Musculoskeletal pain [Recovered/Resolved]
  - Blood glucose increased [Recovered/Resolved]
